FAERS Safety Report 9701832 (Version 2)
Quarter: 2013Q4

REPORT INFORMATION
  Report Type: Spontaneous
  Country: US (occurrence: US)
  Receive Date: 20131121
  Receipt Date: 20131231
  Transmission Date: 20140711
  Serious: No
  Sender: FDA-Public Use
  Company Number: US-PFIZER INC-2013331981

PATIENT
  Age: 53 Year
  Sex: Male
  Weight: 74.83 kg

DRUGS (5)
  1. LYRICA [Suspect]
     Indication: NEUROPATHY PERIPHERAL
     Dosage: 50 MG, 3X/DAY
     Route: 048
     Dates: start: 201307, end: 2013
  2. LYRICA [Suspect]
     Dosage: 100 MG, 3X/DAY
     Route: 048
     Dates: start: 2013, end: 2013
  3. LYRICA [Suspect]
     Dosage: 50 MG, 3X/DAY
     Route: 048
     Dates: start: 2013
  4. METHADONE [Concomitant]
     Dosage: UNK
  5. DILAUDID [Concomitant]
     Dosage: UNK

REACTIONS (5)
  - Off label use [Unknown]
  - Accidental overdose [Unknown]
  - Blood count abnormal [Unknown]
  - Neuropathy peripheral [Unknown]
  - Drug ineffective for unapproved indication [Unknown]
